FAERS Safety Report 8001536-7 (Version None)
Quarter: 2011Q4

REPORT INFORMATION
  Report Type: 
  Country: None (occurrence: None)
  Receive Date: 20111222
  Receipt Date: 20111220
  Transmission Date: 20120403
  Serious: Yes (Other)
  Sender: FDA-Public Use
  Company Number: GB-PFIZER INC-2011265166

PATIENT
  Age: 60 Year
  Sex: Male
  Weight: 126.6 kg

DRUGS (14)
  1. LERCANIDIPINE HYDROCHLORIDE [Concomitant]
     Dosage: UNK
     Dates: start: 20110809
  2. LOSARTAN [Concomitant]
     Dosage: UNK
     Dates: start: 20110809
  3. CITALOPRAM [Concomitant]
     Dosage: UNK
     Dates: start: 20110809, end: 20110810
  4. CO-DYDRAMOL [Concomitant]
     Dosage: UNK
     Dates: start: 20110809
  5. DICLOFENAC SODIUM [Concomitant]
     Dosage: UNK
     Dates: start: 20110809
  6. EPIPEN [Concomitant]
     Dosage: UNK
     Dates: start: 20110428
  7. CETIRIZINE [Concomitant]
     Dosage: UNK
     Dates: start: 20110527, end: 20110906
  8. DOXAZOSIN [Concomitant]
     Dosage: UNK
     Dates: start: 20110809
  9. NYSTATIN [Concomitant]
     Dosage: UNK
     Dates: start: 20110809, end: 20110810
  10. TADALAFIL [Concomitant]
     Dosage: UNK
     Dates: start: 20110809
  11. ATORVASTATIN CALCIUM [Suspect]
     Dosage: UNK
     Dates: start: 20110909
  12. CETIRIZINE [Concomitant]
     Dosage: UNK
     Dates: start: 20111014
  13. METFORMIN [Concomitant]
     Dosage: UNK
     Dates: start: 20110725, end: 20111004
  14. OMEPRAZOLE [Concomitant]
     Dosage: UNK
     Dates: start: 20110809

REACTIONS (1)
  - PRURITUS [None]
